FAERS Safety Report 26198735 (Version 1)
Quarter: 2025Q4

REPORT INFORMATION
  Report Type: Spontaneous
  Country: US (occurrence: US)
  Receive Date: 20251225
  Receipt Date: 20251225
  Transmission Date: 20260118
  Serious: Yes (Other)
  Sender: TEVA
  Company Number: US-TEVA-VS-3404246

PATIENT
  Age: 67 Year
  Sex: Female

DRUGS (6)
  1. CARVEDILOL [Suspect]
     Active Substance: CARVEDILOL
     Indication: Immune-mediated thyroiditis
     Route: 065
  2. IPILIMUMAB [Suspect]
     Active Substance: IPILIMUMAB
     Indication: Clear cell renal cell carcinoma
     Dosage: COMPLETED 3 CYCLES
     Route: 065
  3. METHIMAZOLE [Suspect]
     Active Substance: METHIMAZOLE
     Indication: Immune-mediated thyroiditis
     Route: 065
  4. METHIMAZOLE [Suspect]
     Active Substance: METHIMAZOLE
     Indication: Immune-mediated thyroiditis
     Route: 065
  5. NIVOLUMAB [Suspect]
     Active Substance: NIVOLUMAB
     Indication: Clear cell renal cell carcinoma
     Dosage: COMPLETED 3 CYCLES
     Route: 065
  6. HYDROCORTISONE [Suspect]
     Active Substance: HYDROCORTISONE
     Indication: Immune-mediated thyroiditis
     Route: 065

REACTIONS (5)
  - Immune-mediated thyroiditis [Unknown]
  - Metabolic encephalopathy [Unknown]
  - Sinus tachycardia [Unknown]
  - Drug ineffective [Unknown]
  - Lethargy [Unknown]
